FAERS Safety Report 9392418 (Version 4)
Quarter: 2014Q1

REPORT INFORMATION
  Report Type: Spontaneous
  Country: IE (occurrence: IE)
  Receive Date: 20130710
  Receipt Date: 20140224
  Transmission Date: 20141002
  Serious: Yes (Hospitalization, Other)
  Sender: FDA-Public Use
  Company Number: IE-BIOGENIDEC-2012BI053755

PATIENT
  Age: 40 Year
  Sex: Female

DRUGS (6)
  1. TYSABRI [Suspect]
     Indication: MULTIPLE SCLEROSIS
     Route: 042
     Dates: start: 200609, end: 20121109
  2. TOCOPHERYL ACETATE [Concomitant]
     Indication: MULTIPLE SCLEROSIS
     Route: 048
  3. CALCIUM CARBONATE [Concomitant]
     Indication: MULTIPLE SCLEROSIS
     Route: 048
  4. IVIG [Concomitant]
     Indication: MULTIPLE SCLEROSIS
     Route: 042
     Dates: start: 201208
  5. NAUDICELLE PLUS [Concomitant]
     Indication: MULTIPLE SCLEROSIS
  6. IDEOS [Concomitant]

REACTIONS (2)
  - Progressive multifocal leukoencephalopathy [Not Recovered/Not Resolved]
  - Immune reconstitution inflammatory syndrome [Unknown]
